FAERS Safety Report 16163087 (Version 1)
Quarter: 2019Q2

REPORT INFORMATION
  Report Type: Spontaneous
  Country: US (occurrence: US)
  Receive Date: 20190304
  Receipt Date: 20190304
  Transmission Date: 20190711
  Serious: Yes (Hospitalization)
  Sender: FDA-Public Use
  Company Number: None

PATIENT
  Age: 14 Year
  Sex: Female
  Weight: 62.3 kg

DRUGS (6)
  1. LAMOTRIGINE. [Concomitant]
     Active Substance: LAMOTRIGINE
  2. LEVETIRACETAM. [Concomitant]
     Active Substance: LEVETIRACETAM
  3. PYRIDOXINE [Concomitant]
     Active Substance: PYRIDOXINE
  4. FYCOMPA [Suspect]
     Active Substance: PERAMPANEL
     Route: 048
     Dates: start: 20170427, end: 20170507
  5. DIAZEPAM. [Concomitant]
     Active Substance: DIAZEPAM
  6. CLOBAZAM. [Concomitant]
     Active Substance: CLOBAZAM

REACTIONS (24)
  - Nephropathy toxic [None]
  - Hepatotoxicity [None]
  - Dehydration [None]
  - Intra-abdominal fluid collection [None]
  - Breast mass [None]
  - Fibroadenoma of breast [None]
  - Pancreatitis acute [None]
  - Diarrhoea [None]
  - Urinary retention [None]
  - Vomiting [None]
  - Infection [None]
  - Gastroenteritis viral [None]
  - Hypophagia [None]
  - Mental impairment [None]
  - Atelectasis [None]
  - Cholelithiasis [None]
  - Splenomegaly [None]
  - Oedematous pancreatitis [None]
  - Pyrexia [None]
  - Mental status changes [None]
  - Seizure [None]
  - Blood creatinine increased [None]
  - Pneumonia [None]
  - Pleural effusion [None]

NARRATIVE: CASE EVENT DATE: 20170508
